FAERS Safety Report 8045937-X (Version None)
Quarter: 2012Q1

REPORT INFORMATION
  Report Type: 
  Country: None (occurrence: None)
  Receive Date: 20120113
  Receipt Date: 20120103
  Transmission Date: 20120608
  Serious: Yes (Hospitalization)
  Sender: FDA-Public Use
  Company Number: FR-GLAXOSMITHKLINE-B0773782A

PATIENT
  Sex: Female

DRUGS (6)
  1. ARIXTRA [Suspect]
     Indication: PRODUCT USED FOR UNKNOWN INDICATION
     Dosage: 7.5MG PER DAY
     Route: 058
     Dates: start: 20101001, end: 20110531
  2. TENORMIN [Concomitant]
     Dosage: 50MG PER DAY
     Route: 065
  3. NITROGLYCERIN [Concomitant]
     Dosage: 10MG PER DAY
  4. HEPARIN SODIUM [Suspect]
     Dosage: 1INJ SINGLE DOSE
     Route: 065
     Dates: start: 20110531, end: 20110531
  5. PREVISCAN [Concomitant]
     Route: 065
     Dates: start: 20101001, end: 20110525
  6. AMLODIPINE BESYLATE [Concomitant]
     Dosage: 5MG PER DAY
     Route: 065

REACTIONS (3)
  - MUSCLE HAEMORRHAGE [None]
  - INCORRECT DRUG ADMINISTRATION DURATION [None]
  - GLOBULINS DECREASED [None]
